FAERS Safety Report 23933437 (Version 1)
Quarter: 2024Q2

REPORT INFORMATION
  Report Type: Spontaneous
  Country: US (occurrence: US)
  Receive Date: 20240603
  Receipt Date: 20240603
  Transmission Date: 20240716
  Serious: Yes (Hospitalization, Other)
  Sender: FDA-Public Use
  Company Number: US-DRL-USA-LIT/USA/24/0007843

PATIENT
  Age: 67 Year
  Sex: Female

DRUGS (1)
  1. BIVALIRUDIN [Suspect]
     Active Substance: BIVALIRUDIN
     Indication: Pulmonary embolism

REACTIONS (3)
  - Drug ineffective for unapproved indication [Unknown]
  - Hyperbilirubinaemia [Unknown]
  - Liver injury [Unknown]
